FAERS Safety Report 20235226 (Version 1)
Quarter: 2021Q4

REPORT INFORMATION
  Report Type: Spontaneous
  Country: US (occurrence: US)
  Receive Date: 20211228
  Receipt Date: 20211228
  Transmission Date: 20220303
  Serious: No
  Sender: FDA-Public Use
  Company Number: US-ASTELLAS-2021US046593

PATIENT
  Sex: Female

DRUGS (1)
  1. PADCEV [Suspect]
     Active Substance: ENFORTUMAB VEDOTIN-EJFV
     Indication: Product used for unknown indication
     Dosage: UNK UNK, CYCLIC (FOUR CYCLES OF EV)
     Route: 065

REACTIONS (3)
  - Ocular toxicity [Not Recovered/Not Resolved]
  - Conjunctival hyperaemia [Not Recovered/Not Resolved]
  - Exfoliative rash [Not Recovered/Not Resolved]
